FAERS Safety Report 12953001 (Version 6)
Quarter: 2017Q1

REPORT INFORMATION
  Report Type: Report from Study
  Country: US (occurrence: US)
  Receive Date: 20161117
  Receipt Date: 20170208
  Transmission Date: 20170428
  Serious: Yes (Death, Hospitalization, Other)
  Sender: FDA-Public Use
  Company Number: US-ACTELION-A-US2016-132305

PATIENT
  Age: 57 Year
  Sex: Female

DRUGS (3)
  1. VELETRI [Suspect]
     Active Substance: EPOPROSTENOL
     Dosage: 20 NG/KG, PER MIN
     Route: 042
     Dates: start: 20160108
  2. VELETRI [Suspect]
     Active Substance: EPOPROSTENOL
     Indication: PULMONARY ARTERIAL HYPERTENSION
     Dosage: 28 NG/KG, PER MIN
     Route: 042
  3. REVATIO [Concomitant]
     Active Substance: SILDENAFIL CITRATE

REACTIONS (17)
  - Right ventricular failure [Unknown]
  - Weight increased [Unknown]
  - Pyrexia [Recovered/Resolved]
  - Dyspnoea [Unknown]
  - Ascites [Unknown]
  - Death [Fatal]
  - Device related sepsis [Recovered/Resolved]
  - Complication associated with device [Recovered/Resolved]
  - Blood culture positive [Recovered/Resolved]
  - Pain in jaw [Unknown]
  - Fluid overload [Unknown]
  - Terminal state [Unknown]
  - Depressed mood [Unknown]
  - Catheter management [Recovered/Resolved]
  - Blood pressure decreased [Unknown]
  - Muscle rigidity [Unknown]
  - Pain [Unknown]

NARRATIVE: CASE EVENT DATE: 201610
